FAERS Safety Report 20907535 (Version 1)
Quarter: 2022Q2

REPORT INFORMATION
  Report Type: Spontaneous
  Country: CN (occurrence: CN)
  Receive Date: 20220602
  Receipt Date: 20220602
  Transmission Date: 20220720
  Serious: Yes (Other)
  Sender: FDA-Public Use
  Company Number: CN-PFIZER INC-202200789290

PATIENT
  Age: 6 Year
  Sex: Female
  Weight: 17.5 kg

DRUGS (1)
  1. EPIRUBICIN [Suspect]
     Active Substance: EPIRUBICIN
     Indication: Acute myeloid leukaemia
     Dosage: 35.6 MG IN 0.9% SODIUM CHLORIDE INJECTION 250ML, 1X/DAY
     Route: 041
     Dates: start: 20220513, end: 20220513

REACTIONS (4)
  - Vomiting [Recovering/Resolving]
  - Haematemesis [Recovering/Resolving]
  - Nausea [Recovering/Resolving]
  - Abdominal pain [Recovering/Resolving]

NARRATIVE: CASE EVENT DATE: 20220501
